FAERS Safety Report 15134712 (Version 1)
Quarter: 2018Q3

REPORT INFORMATION
  Report Type: Spontaneous
  Country: US (occurrence: US)
  Receive Date: 20180712
  Receipt Date: 20180712
  Transmission Date: 20181010
  Serious: Yes (Hospitalization, Disabling)
  Sender: FDA-Public Use
  Company Number: US-JNJFOC-20180712488

PATIENT
  Age: 60 Year
  Sex: Male
  Weight: 77.11 kg

DRUGS (1)
  1. INVOKANA [Suspect]
     Active Substance: CANAGLIFLOZIN
     Indication: TYPE 2 DIABETES MELLITUS
     Dosage: VARYING DOSES OF 100 MG AND 300 MG
     Route: 048
     Dates: start: 20160922, end: 20180206

REACTIONS (8)
  - Wound dehiscence [Recovering/Resolving]
  - Impaired healing [Recovering/Resolving]
  - Leg amputation [Unknown]
  - Osteomyelitis acute [Recovering/Resolving]
  - Gangrene [Recovering/Resolving]
  - Foot amputation [Unknown]
  - Diabetic foot infection [Recovering/Resolving]
  - Peripheral ischaemia [Recovering/Resolving]

NARRATIVE: CASE EVENT DATE: 201704
